FAERS Safety Report 7041968-7 (Version None)
Quarter: 2010Q4

REPORT INFORMATION
  Report Type: 
  Country: None (occurrence: None)
  Receive Date: 20101013
  Receipt Date: 20090929
  Transmission Date: 20110411
  Serious: No
  Sender: FDA-Public Use
  Company Number: US-ASTRAZENECA-2009SE16700

PATIENT
  Sex: Female
  Weight: 81.6 kg

DRUGS (9)
  1. SYMBICORT [Suspect]
     Indication: DYSPNOEA
     Dosage: 160/4.5 UG 2 PUFFS
     Route: 055
  2. KEPPRA [Concomitant]
  3. NORVASC [Concomitant]
  4. ASPIRIN [Concomitant]
  5. LASIX [Concomitant]
  6. LOVASTATIN [Concomitant]
  7. ZANTAC [Concomitant]
  8. REQUIP [Concomitant]
  9. AMBIEN CR [Concomitant]

REACTIONS (1)
  - GINGIVAL BLEEDING [None]
